FAERS Safety Report 4852118-7 (Version None)
Quarter: 2005Q4

REPORT INFORMATION
  Report Type: 
  Country: None (occurrence: None)
  Receive Date: 20051123
  Receipt Date: 20050906
  Transmission Date: 20060501
  Serious: No
  Sender: FDA-Public Use
  Company Number: 217493

PATIENT
  Sex: Female
  Weight: 51.2 kg

DRUGS (2)
  1. RAPTIVA [Suspect]
     Indication: PSORIASIS
     Dosage: 1.25 ML, 1/WEEK, SUBCUTANEOUS
     Route: 058
     Dates: start: 20050901
  2. ESTROGEN PATCH (ESTROGENS NOS) [Concomitant]

REACTIONS (4)
  - ARTHRALGIA [None]
  - CHILLS [None]
  - HEADACHE [None]
  - NAUSEA [None]
